FAERS Safety Report 15648610 (Version 4)
Quarter: 2018Q4

REPORT INFORMATION
  Report Type: Spontaneous
  Country: DE (occurrence: DE)
  Receive Date: 20181122
  Receipt Date: 20181126
  Transmission Date: 20190205
  Serious: Yes (Hospitalization)
  Sender: FDA-Public Use
  Company Number: PHHY2018DE159407

PATIENT
  Age: 77 Year
  Sex: Male
  Weight: 138 kg

DRUGS (21)
  1. ABIRATERONE ACETATE. [Suspect]
     Active Substance: ABIRATERONE ACETATE
     Dosage: 1000 MG, UNK
     Route: 048
     Dates: start: 20140425, end: 20141207
  2. PANTOZOL [Concomitant]
     Active Substance: PANTOPRAZOLE SODIUM
     Indication: GASTROOESOPHAGEAL REFLUX DISEASE
     Dosage: 20 MG, QD
     Route: 065
     Dates: start: 20141207
  3. MAGNESIUM [Concomitant]
     Active Substance: MAGNESIUM
     Indication: MAGNESIUM DEFICIENCY
     Dosage: 300 MG, QD
     Route: 065
     Dates: start: 20110102
  4. XGEVA [Concomitant]
     Active Substance: DENOSUMAB
     Indication: PROSTATE CANCER
     Dosage: 120 MG, QW
     Route: 065
     Dates: start: 20140616
  5. HEPARIN [Concomitant]
     Active Substance: HEPARIN SODIUM
     Indication: THROMBOSIS PROPHYLAXIS
     Dosage: UNK UNK, QD
     Route: 065
     Dates: start: 20141208, end: 20141220
  6. TAMSULOSIN [Concomitant]
     Active Substance: TAMSULOSIN
     Indication: BENIGN PROSTATIC HYPERPLASIA
     Dosage: 0.4 MG, QD
     Route: 065
     Dates: start: 20130918
  7. SPASMEX [Concomitant]
     Indication: HYPERTONIC BLADDER
     Dosage: 45 MG, QD
     Route: 065
     Dates: start: 20141107, end: 20141206
  8. VITAMIN B [Concomitant]
     Active Substance: VITAMIN B
     Indication: VITAMIN B COMPLEX DEFICIENCY
  9. MAGNESIUM [Concomitant]
     Active Substance: MAGNESIUM
     Indication: PROPHYLAXIS
  10. NOVODIGAL (DIGOXIN) [Concomitant]
     Active Substance: DIGOXIN
     Indication: ARRHYTHMIA
     Dosage: 0.2 MG, QD
     Route: 065
     Dates: start: 20110102
  11. CEFUROXIME. [Concomitant]
     Active Substance: CEFUROXIME
     Indication: URINARY TRACT INFECTION
     Dosage: 500 MG, QD
     Route: 065
     Dates: start: 20141207, end: 20141220
  12. TOLTERODINE [Concomitant]
     Active Substance: TOLTERODINE
     Indication: HYPERTONIC BLADDER
     Dosage: 2 MG, QD
     Route: 065
     Dates: start: 20140915, end: 20141009
  13. DEKRISTOL [Concomitant]
     Active Substance: CHOLECALCIFEROL
     Indication: PROPHYLAXIS
     Dosage: 3 DF, QW
     Route: 065
     Dates: start: 20140711
  14. PREDNISOLON [Suspect]
     Active Substance: PREDNISOLONE
     Indication: PROSTATE CANCER METASTATIC
     Dosage: 10 MG, QD
     Route: 065
     Dates: start: 20140425
  15. DEKRISTOL [Concomitant]
     Active Substance: CHOLECALCIFEROL
     Indication: VITAMIN D DEFICIENCY
     Dosage: UNK UNK, QW
     Route: 065
     Dates: start: 20140711
  16. VITAMIN B [Concomitant]
     Active Substance: VITAMIN B
     Indication: PROPHYLAXIS
     Dosage: 1 MG, QD
     Route: 065
     Dates: start: 20110102
  17. PROVAS COMP [Concomitant]
     Active Substance: HYDROCHLOROTHIAZIDE\VALSARTAN
     Indication: HYPERTENSION
     Dosage: 320 MG, QD
     Route: 065
     Dates: start: 20110102
  18. ABIRATERONE ACETATE. [Suspect]
     Active Substance: ABIRATERONE ACETATE
     Indication: PROSTATE CANCER METASTATIC
     Dosage: 1000 MG, UNK
     Route: 048
  19. DARIFENACIN. [Concomitant]
     Active Substance: DARIFENACIN
     Indication: HYPERTONIC BLADDER
     Dosage: 15 MG, QD
     Route: 065
     Dates: start: 20141010, end: 20141106
  20. ELIGARD [Concomitant]
     Active Substance: LEUPROLIDE ACETATE
     Indication: PROSTATE CANCER
     Dosage: 22.5 MG, Q3MO
     Route: 065
     Dates: start: 20130318
  21. FUROSEMID [Concomitant]
     Active Substance: FUROSEMIDE
     Indication: HYPERTENSION
     Dosage: 40 MG, QD
     Route: 065
     Dates: start: 20110102

REACTIONS (6)
  - Urinary tract infection [Recovered/Resolved]
  - Tooth fracture [Recovered/Resolved]
  - Dehydration [Recovered/Resolved]
  - Hydronephrosis [Recovered/Resolved]
  - Foot fracture [Recovered/Resolved]
  - Atrial fibrillation [Recovered/Resolved]

NARRATIVE: CASE EVENT DATE: 20141207
